FAERS Safety Report 16382760 (Version 1)
Quarter: 2019Q2

REPORT INFORMATION
  Report Type: Spontaneous
  Country: FR (occurrence: FR)
  Receive Date: 20190603
  Receipt Date: 20190603
  Transmission Date: 20190711
  Serious: Yes (Death, Hospitalization, Other)
  Sender: FDA-Public Use
  Company Number: FR-PFIZER INC-WYEHQWYE321623MAY07

PATIENT
  Age: 77 Year
  Sex: Female

DRUGS (17)
  1. NEURONTIN [Concomitant]
     Active Substance: GABAPENTIN
     Indication: NEURALGIA
     Dosage: 400 MG, 3X/DAY (TID)
     Route: 048
  2. PENTOXIFYLLINE. [Concomitant]
     Active Substance: PENTOXIFYLLINE
     Dosage: UNK, DAILY (QD)
     Route: 048
     Dates: start: 200610
  3. CEFTRIAXONE. [Concomitant]
     Active Substance: CEFTRIAXONE
     Indication: PNEUMONITIS
     Dosage: UNK
     Route: 065
     Dates: start: 20070102, end: 20070102
  4. CARDENSIEL [Suspect]
     Active Substance: BISOPROLOL FUMARATE
     Dosage: 1.25 MG, 1X/DAY (QD)
     Route: 048
     Dates: start: 20070108
  5. AMAREL [Concomitant]
     Active Substance: GLIMEPIRIDE
     Indication: DIABETES MELLITUS
     Dosage: 2 MG, 1X/DAY (QD)
     Route: 048
     Dates: start: 20070104, end: 20070108
  6. CORDARONE [Suspect]
     Active Substance: AMIODARONE HYDROCHLORIDE
     Indication: ATRIAL FIBRILLATION
     Dosage: 200 MG, 1X/DAY (QD)
     Route: 048
     Dates: start: 20061121, end: 20070108
  7. PREVISCAN [Concomitant]
     Dosage: UNK
     Route: 048
     Dates: start: 200610
  8. PRETERAX [Concomitant]
     Active Substance: INDAPAMIDE\PERINDOPRIL
     Dosage: 1 DF, 1X/DAY (QD)
     Route: 048
  9. ACTRAPID [Concomitant]
     Active Substance: INSULIN HUMAN
     Indication: DIABETES MELLITUS
     Dosage: UNK
     Route: 065
     Dates: start: 20070103
  10. LASILIX [FUROSEMIDE] [Concomitant]
     Active Substance: FUROSEMIDE
     Dosage: 1 DF, 1X/DAY (QD)
     Route: 048
     Dates: start: 20061020
  11. DIFFU K [Concomitant]
     Active Substance: POTASSIUM CHLORIDE
     Dosage: 1 DF, 1X/DAY (QD)
     Route: 048
     Dates: start: 20061020
  12. GLUCOPHAGE [Concomitant]
     Active Substance: METFORMIN HYDROCHLORIDE
     Dosage: 850 MG, 1X/DAY (QD)
     Route: 065
  13. PREVISCAN [FLUINDIONE] [Concomitant]
     Active Substance: FLUINDIONE
     Dosage: 1.25 DF, 1X/DAY (QD)
     Route: 048
     Dates: start: 200610
  14. CLAMOXYL [AMOXICILLIN TRIHYDRATE] [Concomitant]
     Active Substance: AMOXICILLIN
     Indication: PNEUMONITIS
     Dosage: 1 G, 3X/DAY (TID)
     Route: 065
     Dates: start: 20070103
  15. TIBERAL [Concomitant]
     Active Substance: ORNIDAZOLE
     Indication: PNEUMONITIS
     Dosage: UNK
     Route: 065
     Dates: start: 20070102, end: 20070102
  16. GLUCOPHAGE [Concomitant]
     Active Substance: METFORMIN HYDROCHLORIDE
     Indication: DIABETES MELLITUS
     Dosage: 850 MG, 3X/DAY (TID)
     Route: 048
     Dates: start: 20070104
  17. ZELITREX [Concomitant]
     Active Substance: VALACYCLOVIR HYDROCHLORIDE
     Indication: ORAL HERPES
     Dosage: 500 MG, 2X/DAY (BID)
     Route: 048

REACTIONS (6)
  - Cardiac failure [Fatal]
  - Lung disorder [Unknown]
  - Hyperthyroidism [Fatal]
  - Cardiogenic shock [Fatal]
  - Cardio-respiratory arrest [Fatal]
  - Respiratory arrest [Fatal]

NARRATIVE: CASE EVENT DATE: 20070102
